FAERS Safety Report 8241729-7 (Version None)
Quarter: 2012Q1

REPORT INFORMATION
  Report Type: 
  Country: None (occurrence: None)
  Receive Date: 20120328
  Receipt Date: 20120320
  Transmission Date: 20120608
  Serious: No
  Sender: FDA-Public Use
  Company Number: US-PFIZER INC-2012074752

PATIENT

DRUGS (1)
  1. LO/OVRAL-28 [Suspect]
     Route: 064

REACTIONS (1)
  - MATERNAL EXPOSURE TIMING UNSPECIFIED [None]
